FAERS Safety Report 14413244 (Version 1)
Quarter: 2018Q1

REPORT INFORMATION
  Report Type: Spontaneous
  Country: FI (occurrence: FI)
  Receive Date: 20180119
  Receipt Date: 20180119
  Transmission Date: 20180509
  Serious: Yes (Life-Threatening)
  Sender: FDA-Public Use
  Company Number: FI-LPDUSPRD-20180042

PATIENT
  Age: 84 Year
  Sex: Female

DRUGS (13)
  1. DIGOXIN ORION [Concomitant]
     Dosage: 0.5 DOSAGE FORM
     Route: 048
     Dates: start: 20120323
  2. FURESIS [Concomitant]
     Active Substance: FUROSEMIDE
     Dosage: 160 MG
     Route: 048
     Dates: start: 20091006
  3. BISAPROLOL ACTAVIS [Concomitant]
     Dosage: 5MG
     Route: 048
     Dates: start: 20111124
  4. PANADOL [Concomitant]
     Active Substance: ACETAMINOPHEN
     Dosage: 2660 MG
     Route: 048
     Dates: start: 20170214
  5. A-VITA [Concomitant]
     Dosage: 2 GTT
     Route: 045
     Dates: start: 20171117
  6. SIMVASTIN ACTAVIS [Concomitant]
     Dosage: 20 MG
     Route: 048
     Dates: start: 20130426
  7. SERETIDE [Concomitant]
     Active Substance: FLUTICASONE PROPIONATE\SALMETEROL XINAFOATE
     Dosage: 4 DOSAGE FORMS
     Route: 045
     Dates: start: 20171106
  8. SELEXID (PEVMECILLINAM HYDROCHLORIDE) [Concomitant]
     Active Substance: AMDINOCILLIN PIVOXIL HYDROCHLORIDE
     Dosage: 600 MG
     Route: 048
     Dates: start: 20171106
  9. THYROXIN [Concomitant]
     Active Substance: LEVOTHYROXINE
     Dosage: 25 GM
     Route: 048
     Dates: start: 20130516
  10. FERINJECT [Suspect]
     Active Substance: FERRIC CARBOXYMALTOSE
     Dosage: 500 MG 1 TOTAL
     Route: 042
     Dates: start: 20171121, end: 20171121
  11. PEGORION [Concomitant]
     Active Substance: POLYETHYLENE GLYCOL 4000
     Dosage: 24 G
     Route: 048
     Dates: start: 20171116
  12. MAREVAN [Concomitant]
     Active Substance: WARFARIN SODIUM
     Dosage: UNKNOWN
     Route: 048
     Dates: start: 20131018
  13. CALCICHEW D3 EXTRA APPELSIINI [Concomitant]
     Dosage: 1 DOSAGE FORM
     Route: 048
     Dates: start: 20170808

REACTIONS (4)
  - Stridor [Not Recovered/Not Resolved]
  - Tachycardia [Not Recovered/Not Resolved]
  - Oxygen saturation decreased [Unknown]
  - Dyspnoea [Not Recovered/Not Resolved]

NARRATIVE: CASE EVENT DATE: 20171121
